FAERS Safety Report 6341600-1 (Version None)
Quarter: 2009Q3

REPORT INFORMATION
  Report Type: 
  Country: None (occurrence: None)
  Receive Date: 20090902
  Receipt Date: 20090902
  Transmission Date: 20100115
  Serious: Yes (Hospitalization, Other)
  Sender: FDA-Public Use
  Company Number: None

PATIENT
  Age: 60 Year
  Sex: Male

DRUGS (4)
  1. METRONIDAZOLE [Suspect]
     Dosage: 1.5 G PER DAY, FEW DAYS
  2. SPIRONOLACTONE [Concomitant]
  3. LACTULOSE [Concomitant]
  4. VITAMIN K [Concomitant]

REACTIONS (4)
  - ATAXIA [None]
  - CHOREA [None]
  - DYSARTHRIA [None]
  - MYOCLONUS [None]
